FAERS Safety Report 9729162 (Version 5)
Quarter: 2014Q2

REPORT INFORMATION
  Report Type: Spontaneous
  Country: US (occurrence: US)
  Receive Date: 20131204
  Receipt Date: 20140618
  Transmission Date: 20141212
  Serious: Yes (Death, Hospitalization, Disabling, Other)
  Sender: FDA-Public Use
  Company Number: US-009507513-1312USA000526

PATIENT
  Sex: Female

DRUGS (8)
  1. FOSAMAX [Suspect]
     Indication: OSTEOPOROSIS
     Dosage: 10 MG, QD
     Route: 048
     Dates: start: 199902
  2. ALENDRONATE SODIUM [Suspect]
     Indication: OSTEOPOROSIS
     Dosage: 10 MG, QD
     Route: 048
     Dates: start: 20080325
  3. AVAPRO [Concomitant]
     Indication: HYPERTENSION
     Dosage: 75 MG, QD
     Dates: start: 1991, end: 2012
  4. AVAPRO [Concomitant]
     Indication: RENAL IMPAIRMENT
  5. FORMOTEROL FUMARATE [Concomitant]
     Indication: ASTHMA
     Dosage: 12 MICROGRAM, Q12H
     Route: 055
     Dates: start: 1995, end: 2012
  6. KLOR-CON [Concomitant]
     Dosage: 10 MEQ, QD
     Dates: start: 1960, end: 2012
  7. HYDROCHLOROTHIAZIDE [Concomitant]
     Indication: FLUID RETENTION
     Dosage: 25 MG, QD
     Route: 048
     Dates: start: 1960, end: 2012
  8. SPIRONOLACTONE [Concomitant]
     Indication: FLUID RETENTION
     Dosage: 50 MG, BID
     Route: 048
     Dates: start: 1960, end: 2012

REACTIONS (66)
  - Femur fracture [Unknown]
  - Jaw fracture [Unknown]
  - Breast cancer female [Unknown]
  - Respiratory failure [Fatal]
  - Dysuria [Unknown]
  - Bladder spasm [Unknown]
  - Lethargy [Unknown]
  - Cholecystectomy [Unknown]
  - Jaw operation [Unknown]
  - Bladder cancer [Unknown]
  - Urinary tract infection [Unknown]
  - Neurogenic bladder [Unknown]
  - Actinomycosis [Unknown]
  - Asthenia [Unknown]
  - Hypersensitivity [Unknown]
  - Osteomyelitis [Unknown]
  - Osteonecrosis of jaw [Not Recovered/Not Resolved]
  - Oral surgery [Unknown]
  - Biopsy bone [Unknown]
  - Nasal congestion [Unknown]
  - Tooth fracture [Unknown]
  - Periodontal operation [Unknown]
  - Adverse event [Unknown]
  - Poliomyelitis [Not Recovered/Not Resolved]
  - Adverse event [Unknown]
  - Chronic obstructive pulmonary disease [Unknown]
  - Coronary artery disease [Unknown]
  - Decubitus ulcer [Unknown]
  - Diverticulitis [Unknown]
  - Kyphoscoliosis [Unknown]
  - Post polio syndrome [Unknown]
  - Leukocytosis [Unknown]
  - Decubitus ulcer [Unknown]
  - Hiatus hernia [Unknown]
  - Diverticulum [Unknown]
  - Fistula [Unknown]
  - Glossodynia [Unknown]
  - Debridement [Unknown]
  - Hypokalaemia [Unknown]
  - Pneumonia bacterial [Unknown]
  - Hypertonic bladder [Unknown]
  - Bronchitis chronic [Not Recovered/Not Resolved]
  - Myositis [Unknown]
  - Magnesium metabolism disorder [Unknown]
  - Hyponatraemia [Unknown]
  - Chronic respiratory failure [Not Recovered/Not Resolved]
  - Hypercalcaemia [Unknown]
  - Pericardial effusion [Unknown]
  - Spinal osteoarthritis [Unknown]
  - Scoliosis [Unknown]
  - Appendicectomy [Unknown]
  - Vitamin D deficiency [Unknown]
  - Hysterectomy [Unknown]
  - Carpal tunnel syndrome [Unknown]
  - Hyponatraemia [Unknown]
  - Spinal osteoarthritis [Unknown]
  - Mastoiditis [Not Recovered/Not Resolved]
  - Tooth extraction [Unknown]
  - Tooth abscess [Unknown]
  - Tooth disorder [Unknown]
  - Palpitations [Unknown]
  - Myalgia [Unknown]
  - Nausea [Unknown]
  - Dysphagia [Unknown]
  - Back pain [Unknown]
  - Drug ineffective [Unknown]
